FAERS Safety Report 4371698-1 (Version None)
Quarter: 2004Q2

REPORT INFORMATION
  Report Type: 
  Country: None (occurrence: None)
  Receive Date: 20040602
  Receipt Date: 20040524
  Transmission Date: 20050107
  Serious: Yes (Hospitalization)
  Sender: FDA-Public Use
  Company Number: FR-JNJFOC-20040505344

PATIENT
  Age: 16 Year
  Sex: Female

DRUGS (4)
  1. RISPERDAL [Suspect]
     Dosage: 3.5 MG, 1 IN 1 DAY ORAL
     Route: 048
  2. TRANXENE [Suspect]
     Dosage: 3.5 MG ORAL
     Route: 048
  3. LEVOTHYROX (LEVOTHYROXINE SODIUM) [Suspect]
     Indication: HYPOTHYROIDISM
     Dosage: 30 MG ORAL
     Route: 048
  4. DEPAKOTE [Suspect]
     Dosage: 1 MG ORAL
     Route: 048

REACTIONS (3)
  - BUNDLE BRANCH BLOCK RIGHT [None]
  - FALL [None]
  - MALAISE [None]
